FAERS Safety Report 23694709 (Version 1)
Quarter: 2024Q2

REPORT INFORMATION
  Report Type: Spontaneous
  Country: US (occurrence: US)
  Receive Date: 20240402
  Receipt Date: 20240402
  Transmission Date: 20240716
  Serious: No
  Sender: FDA-Public Use
  Company Number: US-TEVA-VS-3146235

PATIENT
  Age: 72 Year
  Sex: Female

DRUGS (4)
  1. AJOVY [Suspect]
     Active Substance: FREMANEZUMAB-VFRM
     Indication: Migraine
     Dosage: FREMANEZUMAB-VFRM 225/1.5 MG/ML
     Route: 058
     Dates: start: 202212
  2. AJOVY [Suspect]
     Active Substance: FREMANEZUMAB-VFRM
  3. VITAMIN B2 [Concomitant]
     Active Substance: RIBOFLAVIN
  4. MAGNESIUM OXIDE [Concomitant]
     Active Substance: MAGNESIUM OXIDE

REACTIONS (4)
  - Migraine [Unknown]
  - Palpitations [Unknown]
  - Product dose omission issue [Unknown]
  - Pain [Unknown]
